FAERS Safety Report 15036616 (Version 6)
Quarter: 2020Q1

REPORT INFORMATION
  Report Type: Report from Study
  Country: JP (occurrence: JP)
  Receive Date: 20180620
  Receipt Date: 20200317
  Transmission Date: 20200409
  Serious: Yes (Hospitalization, Disabling, Other)
  Sender: FDA-Public Use
  Company Number: JP-AMGEN-JPNCT2018083383

PATIENT
  Age: 85 Year
  Sex: Male

DRUGS (8)
  1. DARBEPOETIN ALFA [Suspect]
     Active Substance: DARBEPOETIN ALFA
     Dosage: 60 MICROGRAM, Q2WK
     Route: 058
     Dates: start: 20170106
  2. DARBEPOETIN ALFA [Suspect]
     Active Substance: DARBEPOETIN ALFA
     Dosage: 60 MICROGRAM, QD
     Route: 058
     Dates: start: 20160510, end: 20160510
  3. DARBEPOETIN ALFA [Suspect]
     Active Substance: DARBEPOETIN ALFA
     Dosage: 60 MICROGRAM, Q2WK
     Route: 058
     Dates: start: 20160408, end: 20160422
  4. DARBEPOETIN ALFA [Suspect]
     Active Substance: DARBEPOETIN ALFA
     Indication: MYELODYSPLASTIC SYNDROME
     Dosage: 60 MICROGRAM, Q2WK
     Route: 058
     Dates: start: 20151030, end: 20160205
  5. DARBEPOETIN ALFA [Suspect]
     Active Substance: DARBEPOETIN ALFA
     Dosage: 60 MICROGRAM, QD
     Route: 058
     Dates: start: 20160304, end: 20160304
  6. DARBEPOETIN ALFA [Suspect]
     Active Substance: DARBEPOETIN ALFA
     Dosage: 60 MICROGRAM, Q2WK
     Route: 058
     Dates: start: 20160520, end: 20161216
  7. PLETAAL [Concomitant]
     Active Substance: CILOSTAZOL
     Indication: BRADYCARDIA
     Dosage: 200 MILLIGRAM
     Route: 048
     Dates: start: 20160408
  8. DARBEPOETIN ALFA [Suspect]
     Active Substance: DARBEPOETIN ALFA
     Dosage: 60 MICROGRAM, QD
     Route: 058
     Dates: start: 20160223, end: 20160223

REACTIONS (6)
  - Renal impairment [Recovering/Resolving]
  - Bradycardia [Recovering/Resolving]
  - Dehydration [Recovering/Resolving]
  - Renal disorder [Recovering/Resolving]
  - Hyperkalaemia [Recovering/Resolving]
  - Dehydration [Recovering/Resolving]

NARRATIVE: CASE EVENT DATE: 20160304
